FAERS Safety Report 8596175-3 (Version None)
Quarter: 2012Q3

REPORT INFORMATION
  Report Type: 
  Country: None (occurrence: None)
  Receive Date: 20120815
  Receipt Date: 20120807
  Transmission Date: 20120928
  Serious: Yes (Other)
  Sender: FDA-Public Use
  Company Number: US-GLAXOSMITHKLINE-A0984596A

PATIENT
  Age: 61 Year
  Sex: Female

DRUGS (8)
  1. PIROXICAM [Concomitant]
  2. CELEXA [Concomitant]
  3. MULTI-VITAMIN [Concomitant]
  4. PREVACID [Concomitant]
  5. FLUTICASONE PROPIONATE [Suspect]
     Indication: ASTHMA
     Dosage: 1PUFF TWICE PER DAY
     Route: 055
     Dates: start: 20041101
  6. CALCIUM [Concomitant]
  7. SINGULAIR [Concomitant]
  8. RALOXIFENE HYDROCHLORIDE [Concomitant]
     Indication: OSTEOPOROSIS PROPHYLAXIS

REACTIONS (2)
  - PRODUCT QUALITY ISSUE [None]
  - ASTHMA [None]
